APPROVED DRUG PRODUCT: AQUASOL A
Active Ingredient: VITAMIN A PALMITATE
Strength: EQ 50,000 UNITS BASE/ML
Dosage Form/Route: INJECTABLE;INJECTION
Application: N006823 | Product #001
Applicant: CASPER PHARMA LLC
Approved: Approved Prior to Jan 1, 1982 | RLD: Yes | RS: Yes | Type: RX